FAERS Safety Report 16280783 (Version 2)
Quarter: 2019Q2

REPORT INFORMATION
  Report Type: Spontaneous
  Country: FR (occurrence: FR)
  Receive Date: 20190507
  Receipt Date: 20190527
  Transmission Date: 20190711
  Serious: Yes (Hospitalization)
  Sender: FDA-Public Use
  Company Number: FR-ROCHE-2313951

PATIENT
  Age: 53 Year
  Sex: Female
  Weight: 61 kg

DRUGS (10)
  1. XANAX [Concomitant]
     Active Substance: ALPRAZOLAM
     Route: 065
  2. ZALDIAR [Concomitant]
     Active Substance: ACETAMINOPHEN\TRAMADOL HYDROCHLORIDE
     Route: 065
  3. CETORNAN [Concomitant]
     Dosage: FOR 2 MONTHS
     Route: 065
  4. ZYMAD [Concomitant]
     Active Substance: CHOLECALCIFEROL
     Route: 065
  5. LODINE [Concomitant]
     Active Substance: ETODOLAC
     Indication: RHEUMATOID ARTHRITIS
     Route: 048
     Dates: start: 20160603
  6. MONOTILDIEM [Concomitant]
     Active Substance: DILTIAZEM
     Indication: FROSTBITE
  7. ROACTEMRA [Suspect]
     Active Substance: TOCILIZUMAB
     Indication: RHEUMATOID ARTHRITIS
     Route: 058
     Dates: start: 20151201
  8. DAFALGAN [Concomitant]
     Active Substance: ACETAMINOPHEN
     Route: 065
  9. OGAST [Concomitant]
     Active Substance: LANSOPRAZOLE
     Indication: RHEUMATOID ARTHRITIS
     Dosage: 1 DF
     Route: 048
     Dates: start: 20110210
  10. IDEOS [Concomitant]
     Active Substance: CALCIUM CARBONATE\CHOLECALCIFEROL

REACTIONS (1)
  - Pancreatitis acute [Recovered/Resolved]

NARRATIVE: CASE EVENT DATE: 20190430
